FAERS Safety Report 22165597 (Version 1)
Quarter: 2023Q2

REPORT INFORMATION
  Report Type: Spontaneous
  Country: US (occurrence: US)
  Receive Date: 20230403
  Receipt Date: 20230403
  Transmission Date: 20230722
  Serious: No
  Sender: FDA-Public Use
  Company Number: US-BRISTOL-MYERS SQUIBB COMPANY-2023-046557

PATIENT
  Age: 68 Year
  Sex: Male
  Weight: 80.5 kg

DRUGS (1)
  1. REVLIMID [Suspect]
     Active Substance: LENALIDOMIDE
     Indication: Plasma cell myeloma
     Dosage: FREQ: D1-21 Q28 DAYS
     Route: 048
     Dates: start: 20210329

REACTIONS (1)
  - Platelet count decreased [Not Recovered/Not Resolved]
